FAERS Safety Report 9128692 (Version 1)
Quarter: 2013Q1

REPORT INFORMATION
  Report Type: Spontaneous
  Country: IN (occurrence: IN)
  Receive Date: 20130228
  Receipt Date: 20130228
  Transmission Date: 20140127
  Serious: Yes (Other)
  Sender: FDA-Public Use
  Company Number: PHHY2013IN013714

PATIENT
  Sex: Male

DRUGS (7)
  1. SIMULECT [Suspect]
     Indication: RENAL TRANSPLANT
     Dosage: UNK
  2. NEORAL [Concomitant]
     Dosage: UNK UKN, UNK
  3. CELLCEPT [Concomitant]
     Dosage: UNK UKN, UNK
  4. OMNACORTIL//PREDNISOLONE [Concomitant]
     Dosage: UNK UKN, UNK
  5. SEPTRAN [Concomitant]
     Dosage: UNK UKN, UNK
  6. DEPINAR [Concomitant]
     Dosage: UNK UKN, UNK
  7. MOXOVAS [Concomitant]
     Dosage: UNK UKN, UNK

REACTIONS (4)
  - Convulsion [Unknown]
  - Kidney transplant rejection [Unknown]
  - Vasodilatation [Unknown]
  - Oedema [Unknown]
